FAERS Safety Report 12963958 (Version 6)
Quarter: 2020Q3

REPORT INFORMATION
  Report Type: Report from Study
  Country: BR (occurrence: BR)
  Receive Date: 20161122
  Receipt Date: 20200930
  Transmission Date: 20201105
  Serious: Yes (Hospitalization, Other)
  Sender: FDA-Public Use
  Company Number: PHHY2016BR072845

PATIENT
  Age: 73 Year
  Sex: Female
  Weight: 88 kg

DRUGS (9)
  1. SANDOSTATIN LAR DEPOT [Suspect]
     Active Substance: OCTREOTIDE ACETATE
     Dosage: 20 MG
     Route: 065
     Dates: start: 20000101
  2. DIOVAN [Suspect]
     Active Substance: VALSARTAN
     Dosage: 5 YEARS AGO
     Route: 065
  3. SANDOSTATIN LAR DEPOT [Suspect]
     Active Substance: OCTREOTIDE ACETATE
     Dosage: 1 DF, QMO (20 MG) (20 YEARS AGO)
     Route: 030
  4. DIOVAN [Suspect]
     Active Substance: VALSARTAN
     Dosage: 1 DF, QD (2 YEARS AGO)
     Route: 048
  5. DIOVAN [Suspect]
     Active Substance: VALSARTAN
     Dosage: UNK
     Route: 065
  6. SANDOSTATIN LAR DEPOT [Suspect]
     Active Substance: OCTREOTIDE ACETATE
     Indication: ACROMEGALY
     Dosage: 30 MG, QMO
     Route: 065
  7. DIOVAN [Suspect]
     Active Substance: VALSARTAN
     Indication: HYPERTENSION
     Dosage: 30 OT, UNK
     Route: 065
  8. EXFORGE [Concomitant]
     Active Substance: AMLODIPINE BESYLATE\VALSARTAN
     Indication: HYPERTENSION
     Route: 065
  9. SANDOSTATIN LAR DEPOT [Suspect]
     Active Substance: OCTREOTIDE ACETATE
     Dosage: 20 MG, QMO, ONCE A MONTH
     Route: 065

REACTIONS (15)
  - Nodule [Unknown]
  - Thyroid disorder [Unknown]
  - Blood calcium increased [Unknown]
  - Parathyroid disorder [Unknown]
  - Drug ineffective [Unknown]
  - Needle issue [Unknown]
  - Body height decreased [Unknown]
  - Upper limb fracture [Unknown]
  - Osteoarthritis [Unknown]
  - Musculoskeletal discomfort [Unknown]
  - Malaise [Unknown]
  - Injection site pain [Not Recovered/Not Resolved]
  - Arthralgia [Unknown]
  - Eclampsia [Unknown]
  - Epistaxis [Unknown]

NARRATIVE: CASE EVENT DATE: 20200917
